FAERS Safety Report 18509112 (Version 1)
Quarter: 2020Q4

REPORT INFORMATION
  Report Type: Spontaneous
  Country: US (occurrence: US)
  Receive Date: 20201117
  Receipt Date: 20201117
  Transmission Date: 20210114
  Serious: No
  Sender: FDA-Public Use
  Company Number: US-AUROBINDO-AUR-APL-2020-007346

PATIENT
  Sex: Male

DRUGS (1)
  1. MODAFINIL TABLETS USP 200MG [Suspect]
     Active Substance: MODAFINIL
     Indication: SOMNOLENCE
     Dosage: UNK
     Route: 065

REACTIONS (1)
  - Drug ineffective [Unknown]
